FAERS Safety Report 5603211-2 (Version None)
Quarter: 2008Q1

REPORT INFORMATION
  Report Type: 
  Country: None (occurrence: None)
  Receive Date: 20080123
  Receipt Date: 20071030
  Transmission Date: 20080703
  Serious: Yes (Death)
  Sender: FDA-Public Use
  Company Number: 2007334333

PATIENT
  Sex: Male

DRUGS (1)
  1. BENADRYL [Suspect]

REACTIONS (1)
  - ROAD TRAFFIC ACCIDENT [None]
